FAERS Safety Report 15535237 (Version 1)
Quarter: 2018Q4

REPORT INFORMATION
  Report Type: Spontaneous
  Country: US (occurrence: US)
  Receive Date: 20181015
  Receipt Date: 20181015
  Transmission Date: 20190205
  Serious: Yes (Death, Hospitalization)
  Sender: FDA-Public Use
  Company Number: None

PATIENT
  Age: 31 Month
  Sex: Female
  Weight: 13.5 kg

DRUGS (5)
  1. CYCLOPHOSPHAMIDE. [Suspect]
     Active Substance: CYCLOPHOSPHAMIDE
     Dates: end: 20090425
  2. VINCRISTINE SULFATE. [Suspect]
     Active Substance: VINCRISTINE SULFATE
     Dates: end: 20090426
  3. G-CSF (FILGRASTIM, AMGEN) [Suspect]
     Active Substance: FILGRASTIM
     Dates: end: 20090427
  4. MESNA. [Suspect]
     Active Substance: MESNA
     Dates: end: 20090425
  5. DOXORUBICIN HYDROCHLORIDE. [Suspect]
     Active Substance: DOXORUBICIN HYDROCHLORIDE
     Dates: end: 20090426

REACTIONS (17)
  - Acute kidney injury [None]
  - Citrobacter infection [None]
  - Peritoneal dialysis [None]
  - Septic shock [None]
  - Cardiac arrest [None]
  - Brain injury [None]
  - Platelet transfusion [None]
  - Alpha haemolytic streptococcal infection [None]
  - Dehydration [None]
  - Neuroblastoma [None]
  - Blood potassium decreased [None]
  - Respiratory failure [None]
  - Neutropenia [None]
  - Diarrhoea [None]
  - Continuous haemodiafiltration [None]
  - Pyrexia [None]
  - Diaphragmatic paralysis [None]

NARRATIVE: CASE EVENT DATE: 20090504
